FAERS Safety Report 8529240-7 (Version None)
Quarter: 2012Q3

REPORT INFORMATION
  Report Type: 
  Country: None (occurrence: None)
  Receive Date: 20120723
  Receipt Date: 20120709
  Transmission Date: 20120928
  Serious: Yes (Hospitalization, Other)
  Sender: FDA-Public Use
  Company Number: PK-RANBAXY-2012RR-57728

PATIENT
  Age: 40 Year
  Sex: Female

DRUGS (2)
  1. ACETAMINOPHEN [Suspect]
     Indication: PYREXIA
     Dosage: 4 DF, (2 TABLETS IN THE EVENING AND 2 TABLETS THE FOLLOWING MORNING)
     Route: 048
  2. POTASSIUM CHLORIDE [Concomitant]
     Indication: HYPOKALAEMIA
     Route: 065

REACTIONS (1)
  - OVERLAP SYNDROME [None]
